FAERS Safety Report 9490760 (Version 1)
Quarter: 2013Q3

REPORT INFORMATION
  Report Type: Spontaneous
  Country: DE (occurrence: None)
  Receive Date: 20130826
  Receipt Date: 20130826
  Transmission Date: 20140515
  Serious: Yes (Other)
  Sender: FDA-Public Use
  Company Number: GER/GER/13/0034165

PATIENT
  Age: 66 Year
  Sex: Female
  Weight: 97 kg

DRUGS (4)
  1. SIMVABETA [Suspect]
     Indication: PRODUCT USED FOR UNKNOWN INDICATION
     Route: 048
     Dates: start: 20130817
  2. LAMOTRIGIN [Suspect]
     Indication: PRODUCT USED FOR UNKNOWN INDICATION
     Route: 048
     Dates: start: 20130817
  3. LETROZOL [Suspect]
     Indication: PRODUCT USED FOR UNKNOWN INDICATION
     Route: 048
     Dates: start: 20130817
  4. HCT [Suspect]
     Indication: PRODUCT USED FOR UNKNOWN INDICATION
     Route: 048
     Dates: start: 20130817

REACTIONS (7)
  - Intentional overdose [None]
  - Somnolence [None]
  - Hypertension [None]
  - Vomiting [None]
  - Disease recurrence [None]
  - Gastrointestinal sounds abnormal [None]
  - Loss of consciousness [None]
